FAERS Safety Report 14224403 (Version 4)
Quarter: 2018Q1

REPORT INFORMATION
  Report Type: Report from Study
  Country: None (occurrence: GR)
  Receive Date: 20171126
  Receipt Date: 20180222
  Transmission Date: 20180508
  Serious: Yes (Death, Hospitalization, Other)
  Sender: FDA-Public Use
  Company Number: GR-ABBVIE-17K-066-2174189-00

PATIENT
  Age: 83 Year
  Sex: Female
  Weight: 41 kg

DRUGS (1)
  1. DUODOPA [Suspect]
     Active Substance: CARBIDOPA\LEVODOPA
     Indication: PARKINSON^S DISEASE
     Dosage: MORNING DOSE: 11.0 ML;??CONTINUOUS RATE: 2.9 ML/H;??EXTRA DOSE: 1.2 ML
     Route: 050
     Dates: start: 20150721

REACTIONS (5)
  - Septic shock [Fatal]
  - Peritonitis [Recovered/Resolved]
  - Small intestinal perforation [Recovered/Resolved]
  - Decubitus ulcer [Not Recovered/Not Resolved]
  - Tracheostomy [Not Recovered/Not Resolved]

NARRATIVE: CASE EVENT DATE: 20171123
